FAERS Safety Report 8505379-7 (Version None)
Quarter: 2012Q3

REPORT INFORMATION
  Report Type: 
  Country: None (occurrence: None)
  Receive Date: 20120712
  Receipt Date: 20120709
  Transmission Date: 20120928
  Serious: Yes (Other)
  Sender: FDA-Public Use
  Company Number: GB-B.I. PHARMACEUTICALS,INC./RIDGEFIELD-2012-UK-00900UK

PATIENT
  Age: 63 Year
  Sex: Male
  Weight: 123 kg

DRUGS (9)
  1. BUDESONIDE [Concomitant]
     Dates: start: 20120320
  2. TAMSULOSIN HCL [Concomitant]
     Dates: start: 20120320
  3. SPIRIVA [Suspect]
     Dates: start: 20120420
  4. ACETAMINOPHEN AND CODEINE PHOSPHATE [Concomitant]
     Dates: start: 20120320
  5. FINASTERIDE [Concomitant]
     Dates: start: 20120320
  6. VENTOLIN [Concomitant]
     Dates: start: 20120320
  7. VALSARTAN [Concomitant]
     Dates: start: 20120320
  8. AMOXICILLIN [Concomitant]
     Dates: start: 20120501, end: 20120506
  9. PREDNISOLONE [Concomitant]
     Dates: start: 20120501, end: 20120502

REACTIONS (2)
  - ORAL PAIN [None]
  - DRY MOUTH [None]
